FAERS Safety Report 14736736 (Version 3)
Quarter: 2021Q3

REPORT INFORMATION
  Report Type: Spontaneous
  Country: US (occurrence: US)
  Receive Date: 20180409
  Receipt Date: 20210804
  Transmission Date: 20211014
  Serious: Yes (Other)
  Sender: FDA-Public Use
  Company Number: US-ASTRAZENECA-2018SE41977

PATIENT
  Age: 17862 Day
  Sex: Male
  Weight: 111.8 kg

DRUGS (60)
  1. NEXIUM [Suspect]
     Active Substance: ESOMEPRAZOLE MAGNESIUM
     Indication: GASTROOESOPHAGEAL REFLUX DISEASE
     Route: 048
     Dates: start: 2003, end: 2016
  2. CLARITIN [Concomitant]
     Active Substance: LORATADINE
     Indication: MULTIPLE ALLERGIES
     Dates: start: 2008
  3. NASONEX [Concomitant]
     Active Substance: MOMETASONE FUROATE
     Indication: SINUSITIS
     Dates: start: 2006
  4. TRESIBA [Concomitant]
     Active Substance: INSULIN DEGLUDEC
     Indication: DIABETES MELLITUS
     Dates: start: 2016
  5. DOCUSATE SODIUM. [Concomitant]
     Active Substance: DOCUSATE SODIUM
  6. SCOPOLAMINE [Concomitant]
     Active Substance: SCOPOLAMINE
  7. SIMVASTATIN. [Concomitant]
     Active Substance: SIMVASTATIN
  8. METRONIDAZOLE. [Concomitant]
     Active Substance: METRONIDAZOLE
  9. NEXIUM 24HR [Suspect]
     Active Substance: ESOMEPRAZOLE MAGNESIUM
     Route: 048
     Dates: start: 2005, end: 2016
  10. INVOKANA [Concomitant]
     Active Substance: CANAGLIFLOZIN
     Indication: DIABETES MELLITUS
     Dates: start: 2016, end: 2018
  11. ATROVENT [Concomitant]
     Active Substance: IPRATROPIUM BROMIDE
     Indication: SINUSITIS
     Dates: start: 2016, end: 2017
  12. ASTELIN [Concomitant]
     Active Substance: AZELASTINE HYDROCHLORIDE
     Indication: NASAL CONGESTION
     Dates: start: 2006
  13. CEFDINIR. [Concomitant]
     Active Substance: CEFDINIR
  14. FLUTICASONE. [Concomitant]
     Active Substance: FLUTICASONE
  15. PATANOL [Concomitant]
     Active Substance: OLOPATADINE HYDROCHLORIDE
  16. NEXIUM [Suspect]
     Active Substance: ESOMEPRAZOLE MAGNESIUM
     Indication: GASTROOESOPHAGEAL REFLUX DISEASE
     Route: 048
     Dates: start: 2005, end: 2016
  17. PRILOSEC [Suspect]
     Active Substance: OMEPRAZOLE MAGNESIUM
     Route: 048
     Dates: start: 2005, end: 2016
  18. PRILOSEC OTC [Suspect]
     Active Substance: OMEPRAZOLE MAGNESIUM
     Route: 048
     Dates: start: 2005, end: 2016
  19. PREVACID [Suspect]
     Active Substance: LANSOPRAZOLE
     Route: 065
     Dates: start: 2005, end: 2016
  20. TRIGLIDE [Concomitant]
     Active Substance: FENOFIBRATE
     Indication: BLOOD CHOLESTEROL
     Dates: start: 2012, end: 2017
  21. HUMALOG KWIKPEN [Concomitant]
     Active Substance: INSULIN LISPRO
     Indication: DIABETES MELLITUS
     Dates: start: 2013
  22. LORATIDINE [Concomitant]
     Active Substance: LORATADINE
  23. TRAMADOL. [Concomitant]
     Active Substance: TRAMADOL
  24. PROTONIX [Suspect]
     Active Substance: PANTOPRAZOLE SODIUM
     Route: 065
     Dates: start: 2005, end: 2016
  25. LISINOPRIL. [Concomitant]
     Active Substance: LISINOPRIL
  26. LEVEMIR [Concomitant]
     Active Substance: INSULIN DETEMIR
  27. TOUJEO [Concomitant]
     Active Substance: INSULIN GLARGINE
  28. NEXIUM [Suspect]
     Active Substance: ESOMEPRAZOLE MAGNESIUM
     Indication: GASTROOESOPHAGEAL REFLUX DISEASE
     Route: 048
     Dates: start: 2005, end: 2016
  29. NEXIUM [Suspect]
     Active Substance: ESOMEPRAZOLE MAGNESIUM
     Indication: GASTROOESOPHAGEAL REFLUX DISEASE
     Route: 048
     Dates: start: 20110505, end: 20160804
  30. PREVACID 24 HR [Suspect]
     Active Substance: LANSOPRAZOLE
     Route: 065
     Dates: start: 2005, end: 2016
  31. ZANTAC [Concomitant]
     Active Substance: RANITIDINE HYDROCHLORIDE
     Indication: DYSPEPSIA
     Dates: start: 2017, end: 2018
  32. LORATADINE. [Concomitant]
     Active Substance: LORATADINE
  33. GLYBURIDE. [Concomitant]
     Active Substance: GLYBURIDE
  34. DIAZEPAM. [Concomitant]
     Active Substance: DIAZEPAM
  35. NASACORT [Concomitant]
     Active Substance: TRIAMCINOLONE ACETONIDE
  36. MORPHINE [Concomitant]
     Active Substance: MORPHINE
  37. VITAMIN D3 [Concomitant]
     Active Substance: CHOLECALCIFEROL
  38. TAMSULOSIN [Concomitant]
     Active Substance: TAMSULOSIN
  39. DEXILANT [Suspect]
     Active Substance: DEXLANSOPRAZOLE
     Route: 065
     Dates: start: 2005, end: 2016
  40. HYDROCODONE [Concomitant]
     Active Substance: HYDROCODONE
     Indication: PAIN
     Dates: start: 2013, end: 2018
  41. VOLTAREN [Concomitant]
     Active Substance: DICLOFENAC SODIUM
     Indication: PAIN
     Dates: start: 2013, end: 2018
  42. REPATHA [Concomitant]
     Active Substance: EVOLOCUMAB
     Indication: BLOOD CHOLESTEROL
     Dates: start: 2017
  43. MORPHINE SULFATE. [Concomitant]
     Active Substance: MORPHINE SULFATE
  44. TRAMADOL. [Concomitant]
     Active Substance: TRAMADOL
  45. MECLIZINE [Concomitant]
     Active Substance: MECLIZINE HYDROCHLORIDE
  46. KETOROLAC [Concomitant]
     Active Substance: KETOROLAC TROMETHAMINE
  47. ATROVENT HFA [Concomitant]
     Active Substance: IPRATROPIUM BROMIDE
  48. NEXIUM [Suspect]
     Active Substance: ESOMEPRAZOLE MAGNESIUM
     Indication: GASTROOESOPHAGEAL REFLUX DISEASE
     Route: 048
     Dates: start: 20110505, end: 20160804
  49. LISINOPRIL. [Concomitant]
     Active Substance: LISINOPRIL
     Indication: BLOOD PRESSURE MEASUREMENT
     Dates: start: 2005, end: 2018
  50. ASPIRIN. [Concomitant]
     Active Substance: ASPIRIN
     Indication: CARDIAC DISORDER
     Dates: start: 2012, end: 2018
  51. TIZANIDINE. [Concomitant]
     Active Substance: TIZANIDINE
     Indication: MUSCLE SPASMS
     Dates: start: 2013, end: 2018
  52. HYDROCODONE/ACETAMINOPHEN [Concomitant]
     Active Substance: ACETAMINOPHEN\HYDROCODONE
  53. IPRATROPIUM [Concomitant]
     Active Substance: IPRATROPIUM
  54. METFORMIN [Concomitant]
     Active Substance: METFORMIN HYDROCHLORIDE
  55. NEXIUM [Suspect]
     Active Substance: ESOMEPRAZOLE MAGNESIUM
     Indication: GASTROOESOPHAGEAL REFLUX DISEASE
     Route: 048
     Dates: start: 2003, end: 2016
  56. LIPITOR [Concomitant]
     Active Substance: ATORVASTATIN CALCIUM
     Indication: BLOOD CHOLESTEROL
     Dates: start: 2011
  57. LYRICA [Concomitant]
     Active Substance: PREGABALIN
     Indication: NEURALGIA
     Dates: start: 2017, end: 2018
  58. PEPTO?BISMOL [Concomitant]
     Active Substance: BISMUTH SUBSALICYLATE
     Dosage: 20.0MG AS REQUIRED
     Dates: start: 2002
  59. MECLIZINE [Concomitant]
     Active Substance: MECLIZINE HYDROCHLORIDE
  60. TRIAMCINOLONE [Concomitant]
     Active Substance: TRIAMCINOLONE

REACTIONS (3)
  - Acute kidney injury [Unknown]
  - Renal failure [Unknown]
  - Chronic kidney disease [Not Recovered/Not Resolved]

NARRATIVE: CASE EVENT DATE: 20150108
